FAERS Safety Report 4812506-1 (Version None)
Quarter: 2005Q4

REPORT INFORMATION
  Report Type: 
  Country: None (occurrence: None)
  Receive Date: 20051028
  Receipt Date: 20050209
  Transmission Date: 20060501
  Serious: No
  Sender: FDA-Public Use
  Company Number: US-GLAXOSMITHKLINE-A0544759A

PATIENT
  Age: 70 Year
  Sex: Female

DRUGS (6)
  1. ADVAIR DISKUS 100/50 [Suspect]
     Indication: BRONCHIECTASIS
     Dosage: 1PUFF TWICE PER DAY
     Route: 055
  2. NORVASC [Concomitant]
  3. XANAX [Concomitant]
  4. NAPROSYN [Concomitant]
  5. DARVOCET [Concomitant]
  6. PRAVACHOL [Concomitant]

REACTIONS (1)
  - DYSPNOEA [None]
